FAERS Safety Report 5608564-7 (Version None)
Quarter: 2008Q1

REPORT INFORMATION
  Report Type: 
  Country: None (occurrence: None)
  Receive Date: 20080111
  Receipt Date: 20071102
  Transmission Date: 20080703
  Serious: Yes (Other)
  Sender: FDA-Public Use
  Company Number: HQWYE226305FEB03

PATIENT
  Age: 50 Year
  Sex: Female

DRUGS (1)
  1. PREMPRO [Suspect]
     Indication: MENOPAUSE
     Dosage: DOSE AND FREQUENCY NOT SPECIFIED, ORAL
     Route: 048
     Dates: start: 19990101, end: 20030101

REACTIONS (1)
  - CEREBROVASCULAR ACCIDENT [None]
